FAERS Safety Report 14235322 (Version 1)
Quarter: 2017Q4

REPORT INFORMATION
  Report Type: Spontaneous
  Country: US (occurrence: US)
  Receive Date: 20171129
  Receipt Date: 20171129
  Transmission Date: 20180321
  Serious: No
  Sender: FDA-Public Use
  Company Number: US-LEADIANT BIOSCIENCES INC-2017STPI000316

PATIENT
  Sex: Female

DRUGS (4)
  1. DEXAMETHASON                       /00016001/ [Concomitant]
     Active Substance: DEXAMETHASONE
  2. MULTIVITAMIN                       /00097801/ [Concomitant]
     Active Substance: VITAMINS
  3. MATULANE [Suspect]
     Active Substance: PROCARBAZINE HYDROCHLORIDE
     Indication: NON-HODGKIN^S LYMPHOMA
     Dosage: 250 MG, UNK
     Route: 048
     Dates: start: 20170322
  4. FAMOTIDINE. [Concomitant]
     Active Substance: FAMOTIDINE

REACTIONS (1)
  - Blood count abnormal [Unknown]
